FAERS Safety Report 12281260 (Version 1)
Quarter: 2016Q2

REPORT INFORMATION
  Report Type: Spontaneous
  Country: US (occurrence: US)
  Receive Date: 20160419
  Receipt Date: 20160419
  Transmission Date: 20160815
  Serious: Yes (Hospitalization, Other)
  Sender: FDA-Public Use
  Company Number: US-ROCHE-1741091

PATIENT
  Age: 69 Year
  Sex: Male
  Weight: 82.63 kg

DRUGS (2)
  1. COTELLIC [Suspect]
     Active Substance: COBIMETINIB
     Indication: METASTATIC MALIGNANT MELANOMA
     Dosage: 60 MG EVERY DAY FOR 21 DAYS WITH 7 DAYS OFF IN 28 DAY CYCLE
     Route: 048
     Dates: start: 20160201
  2. ZELBORAF [Suspect]
     Active Substance: VEMURAFENIB
     Indication: METASTATIC MALIGNANT MELANOMA
     Route: 048

REACTIONS (5)
  - Subarachnoid haemorrhage [Recovered/Resolved]
  - Cellulitis [Recovered/Resolved]
  - Fall [Unknown]
  - Sepsis [Recovered/Resolved]
  - Acute kidney injury [Recovered/Resolved]

NARRATIVE: CASE EVENT DATE: 20160303
